FAERS Safety Report 14700951 (Version 1)
Quarter: 2018Q1

REPORT INFORMATION
  Report Type: Spontaneous
  Country: FR (occurrence: FR)
  Receive Date: 20180330
  Receipt Date: 20180330
  Transmission Date: 20180509
  Serious: Yes (Other)
  Sender: FDA-Public Use
  Company Number: FR-SA-2018SA088207

PATIENT
  Age: 94 Year
  Sex: Male
  Weight: 52 kg

DRUGS (9)
  1. DISCOTRINE [Concomitant]
     Active Substance: NITROGLYCERIN
     Route: 062
  2. ALDACTONE [Concomitant]
     Active Substance: SPIRONOLACTONE
     Route: 048
  3. IXPRIM [Concomitant]
     Active Substance: ACETAMINOPHEN\TRAMADOL HYDROCHLORIDE
     Route: 048
  4. PLAVIX [Suspect]
     Active Substance: CLOPIDOGREL BISULFATE
     Indication: ARTERITIS
     Route: 048
     Dates: start: 201709, end: 20171206
  5. KARDEGIC [Concomitant]
     Active Substance: ASPIRIN DL-LYSINE
     Route: 048
  6. FUROSEMIDE. [Concomitant]
     Active Substance: FUROSEMIDE
     Route: 048
  7. NICORANDIL [Suspect]
     Active Substance: NICORANDIL
     Indication: AORTIC STENOSIS
     Route: 048
     Dates: start: 201709, end: 20171206
  8. BISOPROLOL [Concomitant]
     Active Substance: BISOPROLOL
     Route: 048
  9. RAMIPRIL. [Concomitant]
     Active Substance: RAMIPRIL
     Route: 048

REACTIONS (2)
  - Dysphagia [Recovered/Resolved]
  - Burn oesophageal [Recovered/Resolved]

NARRATIVE: CASE EVENT DATE: 201709
